FAERS Safety Report 9108296 (Version 5)
Quarter: 2014Q1

REPORT INFORMATION
  Report Type: Spontaneous
  Country: US (occurrence: US)
  Receive Date: 20130222
  Receipt Date: 20140328
  Transmission Date: 20141002
  Serious: Yes (Hospitalization)
  Sender: FDA-Public Use
  Company Number: US-B.I. PHARMACEUTICALS,INC./RIDGEFIELD-2013-BI-04312BP

PATIENT
  Age: 82 Year
  Sex: Female
  Weight: 77.11 kg

DRUGS (25)
  1. PRADAXA [Suspect]
     Indication: ANTICOAGULANT THERAPY
     Dosage: 300 MG
     Route: 065
     Dates: start: 20110105, end: 20110216
  2. PRADAXA [Suspect]
     Indication: ATRIAL FIBRILLATION
     Route: 065
     Dates: start: 20110301, end: 20110309
  3. DIOVAN [Concomitant]
     Route: 065
  4. VYTORIN [Concomitant]
     Route: 065
  5. SPIRONOLACTONE [Concomitant]
     Route: 065
  6. DIGOXIN [Concomitant]
     Dosage: 250 MCG
     Route: 065
  7. FISH OIL [Concomitant]
     Route: 065
  8. GLUCOPHAGE [Concomitant]
     Dosage: 1000 MG
     Route: 065
  9. THYROLAR [Concomitant]
     Route: 065
  10. PREMARIN [Concomitant]
     Dosage: 0.625 MG
     Route: 065
  11. CITRACAL [Concomitant]
     Dosage: 1000 MG
     Route: 065
  12. SUPER B COMPLEX [Concomitant]
     Route: 065
  13. FOLIC ACID [Concomitant]
     Dosage: 400 MCG
     Route: 065
  14. GENTAL IRON [Concomitant]
     Dosage: 25 MG
     Route: 065
  15. STOOL SOFTENER [Concomitant]
     Dosage: 300 MG
     Route: 065
  16. PRILOSEC [Concomitant]
     Route: 065
  17. TYLENOL [Concomitant]
     Indication: PAIN
     Route: 065
  18. RECLAST [Concomitant]
     Route: 065
  19. MULTIVITAMIN [Concomitant]
     Route: 065
  20. CYTOMEL [Concomitant]
     Route: 065
  21. VITAMIN B12 INJECTION [Concomitant]
     Route: 065
  22. KEFLEX [Concomitant]
     Dosage: 1000 MG
     Route: 065
  23. CELEXA [Concomitant]
     Dosage: 10 MG
     Route: 065
  24. MULTAQ [Concomitant]
     Dosage: 800 MG
     Route: 065
  25. REMICADE [Concomitant]
     Indication: RHEUMATOID ARTHRITIS
     Dosage: 25 MG
     Route: 042

REACTIONS (2)
  - Gastrointestinal haemorrhage [Recovered/Resolved]
  - Gastrointestinal haemorrhage [Unknown]
